FAERS Safety Report 4461356-7 (Version None)
Quarter: 2004Q3

REPORT INFORMATION
  Report Type: 
  Country: None (occurrence: None)
  Receive Date: 20040928
  Receipt Date: 20040915
  Transmission Date: 20050211
  Serious: Yes (Hospitalization)
  Sender: FDA-Public Use
  Company Number: PHBS2004NZ12231

PATIENT
  Age: 32 Year
  Sex: Male

DRUGS (2)
  1. CLOZARIL [Suspect]
     Indication: SCHIZOPHRENIA
     Route: 048
     Dates: start: 20000724
  2. CLOZARIL [Suspect]
     Dosage: 400 MG/D
     Route: 048
     Dates: start: 20040915

REACTIONS (14)
  - DRUG LEVEL INCREASED [None]
  - HAEMATOCRIT DECREASED [None]
  - HAEMOGLOBIN DECREASED [None]
  - HYPOCHROMIC ANAEMIA [None]
  - LEUKOCYTOSIS [None]
  - MEAN CELL HAEMOGLOBIN DECREASED [None]
  - MEAN CELL VOLUME DECREASED [None]
  - MICROCYTIC ANAEMIA [None]
  - OVERDOSE [None]
  - POLYCHROMIC RED BLOOD CELLS PRESENT [None]
  - PYREXIA [None]
  - RED CELL DISTRIBUTION WIDTH INCREASED [None]
  - SEDATION [None]
  - TACHYCARDIA [None]
